FAERS Safety Report 7912962-6 (Version None)
Quarter: 2011Q4

REPORT INFORMATION
  Report Type: 
  Country: None (occurrence: None)
  Receive Date: 20111114
  Receipt Date: 20111103
  Transmission Date: 20120403
  Serious: Yes (Other)
  Sender: FDA-Public Use
  Company Number: US-ASTRAZENECA-2011SE66728

PATIENT
  Age: 58 Year
  Sex: Female
  Weight: 136.1 kg

DRUGS (17)
  1. NEXIUM [Suspect]
     Route: 048
     Dates: start: 20040101, end: 20091101
  2. HYDROCODONE BITARTRATE [Concomitant]
  3. FOLIC ACID [Concomitant]
     Indication: BLOOD DISORDER
  4. VITAMIN B-12 [Concomitant]
     Indication: BLOOD DISORDER
  5. SEROQUEL [Suspect]
     Indication: DEPRESSION
     Route: 048
     Dates: start: 20030101
  6. SEROQUEL [Suspect]
     Indication: SUICIDAL IDEATION
     Route: 048
     Dates: start: 20030101
  7. DIAZEPAM [Concomitant]
     Indication: ANXIETY
  8. MORPHINE [Concomitant]
  9. IPRATROPIUM BROMIDE [Concomitant]
  10. VENTOLIN [Concomitant]
  11. PIROXICAM [Suspect]
     Indication: ARTHRITIS
     Route: 065
  12. SPIRIVA [Concomitant]
  13. VITAMIN B6 [Concomitant]
     Indication: BLOOD DISORDER
  14. ALBUTEROL [Concomitant]
  15. FUROSEMIDE [Concomitant]
  16. PAROXETINE HCL [Concomitant]
  17. COUMADIN [Concomitant]
     Dosage: 5MG AND 3 MG EVERY OTHER DAY

REACTIONS (3)
  - INTRA-ABDOMINAL HAEMORRHAGE [None]
  - OFF LABEL USE [None]
  - GASTRIC ULCER [None]
